FAERS Safety Report 7300855-7 (Version None)
Quarter: 2011Q1

REPORT INFORMATION
  Report Type: 
  Country: None (occurrence: None)
  Receive Date: 20110103
  Receipt Date: 20100614
  Transmission Date: 20110831
  Serious: Yes (Hospitalization)
  Sender: FDA-Public Use
  Company Number: US-004609

PATIENT
  Age: 62 Year
  Sex: Female
  Weight: 106 kg

DRUGS (2)
  1. MULTIHANCE [Suspect]
     Indication: BACK PAIN
     Dosage: 20ML ONCE INTRAVENOUS
     Route: 042
     Dates: start: 20100610, end: 20100610
  2. MULTIHANCE [Suspect]
     Indication: NUCLEAR MAGNETIC RESONANCE IMAGING
     Dosage: 20ML ONCE INTRAVENOUS
     Route: 042
     Dates: start: 20100610, end: 20100610

REACTIONS (3)
  - NAUSEA [None]
  - DISORIENTATION [None]
  - VOMITING [None]
